FAERS Safety Report 9150731 (Version 1)
Quarter: 2013Q1

REPORT INFORMATION
  Report Type: Spontaneous
  Country: US (occurrence: None)
  Receive Date: 20130201
  Receipt Date: 20130201
  Transmission Date: 20140127
  Serious: Yes (Life-Threatening, Hospitalization, Other)
  Sender: FDA-Public Use
  Company Number: 2013P1001174

PATIENT
  Age: 60 Year
  Sex: Female

DRUGS (4)
  1. AMLODIPINE [Suspect]
     Indication: HYPERTENSION
     Route: 048
  2. AMLODIPINE [Suspect]
     Indication: SELF-MEDICATION
     Route: 048
  3. METOPROLOL [Concomitant]
  4. ASPIRIN [Concomitant]

REACTIONS (10)
  - Abdominal pain [None]
  - Blood pressure decreased [None]
  - Lactic acidosis [None]
  - Small intestinal obstruction [None]
  - Ileus paralytic [None]
  - Shock [None]
  - Overdose [None]
  - Toxicity to various agents [None]
  - Respiratory failure [None]
  - Self-medication [None]
